FAERS Safety Report 22350252 (Version 2)
Quarter: 2024Q2

REPORT INFORMATION
  Report Type: Spontaneous
  Country: JP (occurrence: JP)
  Receive Date: 20230522
  Receipt Date: 20240407
  Transmission Date: 20240716
  Serious: Yes (Other)
  Sender: FDA-Public Use
  Company Number: JP-AMGEN-JPNSP2022142520

PATIENT
  Age: 75 Year

DRUGS (3)
  1. LUMAKRAS [Suspect]
     Active Substance: SOTORASIB
     Indication: Non-small cell lung cancer
     Dosage: 960 MILLIGRAM
     Route: 048
     Dates: start: 20220608, end: 2022
  2. LUMAKRAS [Suspect]
     Active Substance: SOTORASIB
     Dosage: 480 MILLIGRAM, DOSE REDUCCTION
     Route: 048
     Dates: start: 2022
  3. LUMAKRAS [Suspect]
     Active Substance: SOTORASIB
     Dosage: 360 MILLIGRAM
     Route: 048

REACTIONS (2)
  - Non-small cell lung cancer [Unknown]
  - Liver disorder [Recovered/Resolved]

NARRATIVE: CASE EVENT DATE: 20230501
